FAERS Safety Report 17831854 (Version 1)
Quarter: 2020Q2

REPORT INFORMATION
  Report Type: Spontaneous
  Country: IT (occurrence: IT)
  Receive Date: 20200528
  Receipt Date: 20200528
  Transmission Date: 20200714
  Serious: Yes (Other)
  Sender: FDA-Public Use
  Company Number: IT-AUROBINDO-AUR-APL-2020-026025

PATIENT
  Age: 24 Year
  Sex: Male

DRUGS (2)
  1. RISPERIDONE. [Suspect]
     Active Substance: RISPERIDONE
     Indication: SCHIZOPHRENIA
     Dosage: UNK, RISPERIDONE UP TO 5 MG
     Route: 065
     Dates: start: 2018
  2. RISPERIDONE. [Suspect]
     Active Substance: RISPERIDONE
     Dosage: 5 MILLIGRAM, RISPERIDONE UP TO 5 MG
     Route: 065
     Dates: start: 2018

REACTIONS (6)
  - Weight increased [Unknown]
  - Tremor [Recovering/Resolving]
  - Libido decreased [Recovering/Resolving]
  - Blood prolactin increased [Recovering/Resolving]
  - Affective disorder [Unknown]
  - Extrapyramidal disorder [Unknown]

NARRATIVE: CASE EVENT DATE: 2018
